FAERS Safety Report 4389341-4 (Version None)
Quarter: 2004Q2

REPORT INFORMATION
  Report Type: 
  Country: None (occurrence: None)
  Receive Date: 20040630
  Receipt Date: 20040617
  Transmission Date: 20050107
  Serious: Yes (Hospitalization)
  Sender: FDA-Public Use
  Company Number: 2004219916FR

PATIENT
  Age: 48 Year
  Sex: Male

DRUGS (4)
  1. SOLU-MEDROL [Suspect]
     Indication: INFECTION IN AN IMMUNOCOMPROMISED HOST
     Dosage: 40 MG, BID, INTRAMUSCULAR
     Route: 030
     Dates: start: 20040518, end: 20040528
  2. BACTRIM [Suspect]
     Indication: INFECTION IN AN IMMUNOCOMPROMISED HOST
     Dosage: 8 DOSES, QD, ORAL
     Route: 048
     Dates: start: 20040518, end: 20040524
  3. KALETRA [Concomitant]
  4. VIREAD [Concomitant]

REACTIONS (2)
  - CONFUSIONAL STATE [None]
  - DISINHIBITION [None]
